FAERS Safety Report 9976527 (Version 1)
Quarter: 2014Q1

REPORT INFORMATION
  Report Type: Report from Study
  Country: US (occurrence: US)
  Receive Date: 20140306
  Receipt Date: 20140306
  Transmission Date: 20141002
  Serious: No
  Sender: FDA-Public Use
  Company Number: US-ABBVIE-13P-163-1165673-00

PATIENT
  Age: 42 Year
  Sex: Female

DRUGS (5)
  1. HUMIRA [Suspect]
     Indication: CROHN^S DISEASE
     Dates: start: 20131004
  2. HUMIRA [Suspect]
     Dosage: (2 PENS) LOADING DOSE
     Dates: start: 20131018
  3. 6-MP [Concomitant]
     Indication: CROHN^S DISEASE
     Dosage: DAILY
  4. ALLOPURINOL [Concomitant]
     Indication: CROHN^S DISEASE
     Dosage: 100MG DAILY
  5. SERTRALINE [Concomitant]
     Indication: SERUM SEROTONIN DECREASED
     Dosage: (WEANING OFF HERSELF)

REACTIONS (1)
  - Injection site rash [Recovered/Resolved]
